FAERS Safety Report 5765543-7 (Version None)
Quarter: 2008Q2

REPORT INFORMATION
  Report Type: 
  Country: None (occurrence: None)
  Receive Date: 20080605
  Receipt Date: 20080519
  Transmission Date: 20081010
  Serious: Yes (Other)
  Sender: FDA-Public Use
  Company Number: 2008001172

PATIENT
  Age: 66 Year
  Sex: Male

DRUGS (11)
  1. ERLOTINIB (ERLOTINIB) (TABLET) (ERLOTINIB) [Suspect]
     Indication: NON-SMALL CELL LUNG CANCER
     Dosage: (150 MG, QD), ORAL
     Route: 048
     Dates: start: 20080327, end: 20080421
  2. NOVELBINE [Suspect]
     Dates: start: 20060510, end: 20060906
  3. NOVELBINE [Suspect]
     Dates: start: 20070420, end: 20070614
  4. GEMCITABINE [Suspect]
     Dosage: INTRAVENOUS
     Route: 042
     Dates: start: 20060510, end: 20060906
  5. DOCETAXEL (DOCETAXEL) (INJECTION FOR INFUSION) [Suspect]
     Dosage: INTRAVENOUS
     Route: 042
     Dates: start: 20070308, end: 20070329
  6. LOXONIN (LOXOPROFEN SODIUM) [Concomitant]
  7. VINORELBINE TARTRATE [Concomitant]
  8. ISOSORBIDE (ISOSORBIDE) [Concomitant]
  9. GASTER (FAMOTIDINE) [Concomitant]
  10. GLYCERIN (GLYCEROL) [Concomitant]
  11. TOLTERODINE TARTRATE [Concomitant]

REACTIONS (2)
  - DERMATITIS [None]
  - ULCERATIVE KERATITIS [None]
